FAERS Safety Report 4353371-9 (Version None)
Quarter: 2004Q2

REPORT INFORMATION
  Report Type: 
  Country: None (occurrence: None)
  Receive Date: 20040430
  Receipt Date: 20040415
  Transmission Date: 20050107
  Serious: Yes (Hospitalization)
  Sender: FDA-Public Use
  Company Number: ATO-04-0381

PATIENT
  Age: 63 Year
  Sex: Female
  Weight: 55.7924 kg

DRUGS (7)
  1. TRISENOX [Suspect]
     Indication: MULTIPLE MYELOMA
     Dosage: (0.25 MG/KG, BIW) IVI
     Route: 042
     Dates: start: 20040301, end: 20040402
  2. MELPHALAN [Concomitant]
  3. ASCORBIC ACID [Concomitant]
  4. AREDIA [Concomitant]
  5. ANZEMET [Concomitant]
  6. NEUPOGEN [Concomitant]
  7. ARANESP [Concomitant]

REACTIONS (2)
  - CEREBROVASCULAR ACCIDENT [None]
  - PERONEAL NERVE PALSY [None]
